FAERS Safety Report 11436925 (Version 2)
Quarter: 2015Q4

REPORT INFORMATION
  Report Type: Spontaneous
  Country: US (occurrence: US)
  Receive Date: 20150831
  Receipt Date: 20151124
  Transmission Date: 20160304
  Serious: No
  Sender: FDA-Public Use
  Company Number: US-PFIZER INC-2015285225

PATIENT
  Age: 55 Year
  Sex: Male

DRUGS (3)
  1. CORTISONE ACETATE. [Suspect]
     Active Substance: CORTISONE ACETATE
     Dosage: UNK, SINGLE
  2. GABAPENTIN. [Concomitant]
     Active Substance: GABAPENTIN
     Indication: FIBROMYALGIA
     Dosage: 900 MG, 3X/DAY (300MG 3XDAY AND 600MG 3XDAY)
     Route: 048
     Dates: end: 201507
  3. GABAPENTIN. [Concomitant]
     Active Substance: GABAPENTIN
     Indication: ARTHRALGIA

REACTIONS (1)
  - Drug ineffective [Unknown]
